FAERS Safety Report 18561678 (Version 1)
Quarter: 2020Q4

REPORT INFORMATION
  Report Type: Spontaneous
  Country: RS (occurrence: RS)
  Receive Date: 20201201
  Receipt Date: 20201201
  Transmission Date: 20210114
  Serious: Yes (Hospitalization, Other)
  Sender: FDA-Public Use
  Company Number: RS-B.I. PHARMACEUTICALS,INC./RIDGEFIELD-2020-BI-063993

PATIENT
  Age: 71 Year

DRUGS (3)
  1. GILOTRIF [Suspect]
     Active Substance: AFATINIB
     Indication: SQUAMOUS CELL CARCINOMA
     Dates: start: 201907
  2. GILOTRIF [Suspect]
     Active Substance: AFATINIB
     Dates: start: 201912
  3. GILOTRIF [Suspect]
     Active Substance: AFATINIB

REACTIONS (5)
  - Stomatitis [Unknown]
  - COVID-19 [Unknown]
  - Diarrhoea [Unknown]
  - Weight decreased [Unknown]
  - Rash [Unknown]

NARRATIVE: CASE EVENT DATE: 201912
